FAERS Safety Report 25274508 (Version 3)
Quarter: 2025Q3

REPORT INFORMATION
  Report Type: Spontaneous
  Country: US (occurrence: US)
  Receive Date: 20250506
  Receipt Date: 20250702
  Transmission Date: 20251020
  Serious: Yes (Other)
  Sender: TAKEDA
  Company Number: US-TAKEDA-2025TUS042514

PATIENT
  Sex: Male

DRUGS (1)
  1. ELAPRASE [Suspect]
     Active Substance: IDURSULFASE
     Indication: Product used for unknown indication

REACTIONS (5)
  - Hypoxia [Unknown]
  - Infusion related reaction [Unknown]
  - Illness [Unknown]
  - Dyspnoea [Unknown]
  - Pyrexia [Unknown]
